FAERS Safety Report 7358021-5 (Version None)
Quarter: 2011Q1

REPORT INFORMATION
  Report Type: 
  Country: None (occurrence: None)
  Receive Date: 20110317
  Receipt Date: 20110314
  Transmission Date: 20110831
  Serious: Yes (Hospitalization, Other)
  Sender: FDA-Public Use
  Company Number: FR-ABBOTT-11P-056-0711511-00

PATIENT
  Sex: Female

DRUGS (6)
  1. HUMIRA [Suspect]
     Indication: RHEUMATOID ARTHRITIS
     Route: 058
     Dates: start: 20061001, end: 20070501
  2. HUMIRA [Suspect]
     Route: 058
     Dates: start: 20100601, end: 20101201
  3. ENBREL [Suspect]
     Indication: RHEUMATOID ARTHRITIS
     Route: 058
     Dates: start: 20070501, end: 20100601
  4. NOVATREX [Suspect]
     Indication: RHEUMATOID ARTHRITIS
     Route: 048
     Dates: start: 19991201, end: 20011201
  5. NOVATREX [Suspect]
     Route: 048
     Dates: start: 20031201, end: 20101201
  6. PREDNISONE [Concomitant]
     Indication: RHEUMATOID ARTHRITIS
     Dosage: VARIABLE DOSAGE
     Route: 048
     Dates: start: 19990101, end: 20100101

REACTIONS (3)
  - FALL [None]
  - B-CELL LYMPHOMA STAGE I [None]
  - MONOPARESIS [None]
